FAERS Safety Report 7543533-1 (Version None)
Quarter: 2011Q2

REPORT INFORMATION
  Report Type: 
  Country: None (occurrence: None)
  Receive Date: 20110613
  Receipt Date: 20110610
  Transmission Date: 20111010
  Serious: Yes (Disabling, Other)
  Sender: FDA-Public Use
  Company Number: US-PFIZER INC-2011127655

PATIENT
  Sex: Male
  Weight: 99.773 kg

DRUGS (5)
  1. WELLBUTRIN [Concomitant]
     Indication: NERVOUS SYSTEM DISORDER
     Dosage: UNK,  DAILY
     Route: 048
  2. ZOLOFT [Concomitant]
     Indication: BIPOLAR DISORDER
  3. ZOLOFT [Concomitant]
     Indication: BIPOLAR I DISORDER
     Dosage: 40 MG, DAILY
  4. KLONOPIN [Concomitant]
     Indication: ANXIETY
     Dosage: 2 MG, DAILY
     Route: 048
  5. GEODON [Suspect]
     Indication: SUICIDE ATTEMPT
     Dosage: 30 MG, DAILY
     Dates: end: 20110601

REACTIONS (3)
  - DEAFNESS [None]
  - SUICIDAL IDEATION [None]
  - WITHDRAWAL SYNDROME [None]
